FAERS Safety Report 12284449 (Version 2)
Quarter: 2016Q2

REPORT INFORMATION
  Report Type: Spontaneous
  Country: AU (occurrence: AU)
  Receive Date: 20160420
  Receipt Date: 20160421
  Transmission Date: 20160815
  Serious: Yes (Other)
  Sender: FDA-Public Use
  Company Number: AU-JNJFOC-20160409952

PATIENT
  Sex: Male

DRUGS (3)
  1. CODRAL COUGH, COLD + FLU DAY + NIGHT (DAY/NIGHT) [Suspect]
     Active Substance: ACETAMINOPHEN\CHLORPHENIRAMINE MALEATE\DEXTROMETHORPHAN HYDROBROMIDE\PHENYLEPHRINE HYDROCHLORIDE
     Indication: INFLUENZA
     Route: 048
  2. ALL OTHER THERAPEUTIC PRODUCTS [Concomitant]
     Active Substance: UNSPECIFIED INGREDIENT
     Indication: ASTHMA
     Route: 055
  3. CODRAL COUGH, COLD + FLU DAY + NIGHT (DAY/NIGHT) [Suspect]
     Active Substance: ACETAMINOPHEN\CHLORPHENIRAMINE MALEATE\DEXTROMETHORPHAN HYDROBROMIDE\PHENYLEPHRINE HYDROCHLORIDE
     Indication: NASOPHARYNGITIS
     Route: 048

REACTIONS (8)
  - Contraindicated drug administered [Unknown]
  - Myocardial infarction [Unknown]
  - Product formulation issue [Unknown]
  - Pain in extremity [Unknown]
  - Wheezing [Unknown]
  - Obstructive airways disorder [Unknown]
  - Palpitations [Unknown]
  - Product label issue [Unknown]
